FAERS Safety Report 7568218-7 (Version None)
Quarter: 2011Q2

REPORT INFORMATION
  Report Type: 
  Country: None (occurrence: None)
  Receive Date: 20110623
  Receipt Date: 20110620
  Transmission Date: 20111010
  Serious: Yes (Hospitalization)
  Sender: FDA-Public Use
  Company Number: US-TEVA-287077USA

PATIENT
  Sex: Female
  Weight: 51 kg

DRUGS (5)
  1. CYTARABINE [Suspect]
     Indication: ACUTE MYELOID LEUKAEMIA
     Dosage: 140 MILLIGRAM;
     Route: 042
     Dates: start: 20110504, end: 20110514
  2. DAUNORUBICIN HCL [Suspect]
     Indication: ACUTE MYELOID LEUKAEMIA
     Route: 042
     Dates: start: 20110504, end: 20110508
  3. ETOPOSIDE [Suspect]
     Indication: ACUTE MYELOID LEUKAEMIA
     Dosage: 147 MILLIGRAM;
     Route: 042
     Dates: start: 20110504, end: 20110508
  4. ACETAMINOPHEN [Concomitant]
     Indication: PYREXIA
     Dosage: 2600 MILLIGRAM; AS NEEDED
     Route: 048
     Dates: start: 20110430
  5. ACETAMINOPHEN [Concomitant]
     Indication: PAIN
     Dosage: 300 MILLIGRAM;
     Route: 048

REACTIONS (1)
  - HYPOXIA [None]
